FAERS Safety Report 12196555 (Version 1)
Quarter: 2016Q1

REPORT INFORMATION
  Report Type: Spontaneous
  Country: IT (occurrence: IT)
  Receive Date: 20160321
  Receipt Date: 20160321
  Transmission Date: 20160526
  Serious: Yes (Other)
  Sender: FDA-Public Use
  Company Number: IT-PFIZER INC-2016156894

PATIENT
  Age: 84 Year
  Sex: Female

DRUGS (8)
  1. APROVEL [Concomitant]
     Active Substance: IRBESARTAN
  2. ZYLORIC [Concomitant]
     Active Substance: ALLOPURINOL
  3. LASIX [Concomitant]
     Active Substance: FUROSEMIDE
  4. CARDURA [Suspect]
     Active Substance: DOXAZOSIN MESYLATE
     Indication: HYPERTENSION
     Dosage: 2 MG, DAILY
     Route: 048
     Dates: start: 20150101, end: 20151026
  5. ACETYLSALICYLIC ACID [Concomitant]
     Active Substance: ASPIRIN
     Dosage: 100 MG, UNK
     Route: 048
  6. TRIATEC /00116401/ [Concomitant]
     Active Substance: ACETAMINOPHEN\CODEINE PHOSPHATE
  7. NORVASC [Concomitant]
     Active Substance: AMLODIPINE BESYLATE
  8. CONGESCOR [Concomitant]
     Active Substance: BISOPROLOL

REACTIONS (3)
  - Condition aggravated [Unknown]
  - Hypertensive heart disease [Unknown]
  - Confusional state [Unknown]

NARRATIVE: CASE EVENT DATE: 20151026
